FAERS Safety Report 4581435-3 (Version None)
Quarter: 2005Q1

REPORT INFORMATION
  Report Type: 
  Country: None (occurrence: None)
  Receive Date: 20050127
  Receipt Date: 20041105
  Transmission Date: 20050727
  Serious: No
  Sender: FDA-Public Use
  Company Number: USA040876253

PATIENT
  Age: 6 Year
  Sex: Male
  Weight: 29 kg

DRUGS (1)
  1. STRATTERA [Suspect]
     Indication: ATTENTION DEFICIT/HYPERACTIVITY DISORDER
     Dosage: 25 MG/L DAY
     Dates: start: 20040814, end: 20040821

REACTIONS (2)
  - CHEST PAIN [None]
  - HEART RATE INCREASED [None]
